FAERS Safety Report 6215991-6 (Version None)
Quarter: 2009Q2

REPORT INFORMATION
  Report Type: 
  Country: None (occurrence: None)
  Receive Date: 20090605
  Receipt Date: 20090603
  Transmission Date: 20091009
  Serious: Yes (Death, Hospitalization, Other)
  Sender: FDA-Public Use
  Company Number: US-BRISTOL-MYERS SQUIBB COMPANY-14647960

PATIENT
  Age: 82 Year
  Sex: Female

DRUGS (1)
  1. ERBITUX [Suspect]
     Dosage: INFUSION

REACTIONS (6)
  - CONFUSIONAL STATE [None]
  - DIZZINESS [None]
  - FALL [None]
  - HIP FRACTURE [None]
  - LETHARGY [None]
  - POLLAKIURIA [None]
